FAERS Safety Report 6432535-4 (Version None)
Quarter: 2009Q4

REPORT INFORMATION
  Report Type: 
  Country: None (occurrence: None)
  Receive Date: 20091109
  Receipt Date: 20091105
  Transmission Date: 20100525
  Serious: Yes (Other)
  Sender: FDA-Public Use
  Company Number: AU-BAYER-200938126GPV

PATIENT
  Age: 67 Year
  Sex: Male
  Weight: 72 kg

DRUGS (8)
  1. NEXAVAR [Suspect]
     Indication: HEPATIC NEOPLASM MALIGNANT
     Dosage: 200 MG MANE, 100 MG NOCTE
     Route: 048
     Dates: start: 20090501, end: 20091021
  2. METFORMIN [Concomitant]
     Dosage: TOTAL DAILY DOSE: 1000 MG
     Route: 048
  3. ASPIRIN [Concomitant]
     Route: 048
  4. PRAVASTATIN [Concomitant]
     Dosage: TOTAL DAILY DOSE: 40 MG
     Route: 048
  5. AMILORIDE HCL AND HYDROCHLOROTHIAZIDE [Concomitant]
     Dosage: AS USED: 5/50 MG
     Route: 048
  6. VERAPAMIL [Concomitant]
     Dosage: TOTAL DAILY DOSE: 240 MG
     Route: 048
     Dates: end: 20091021
  7. TELMISARTAN AND HYDROCHLOROTHIAZIDE [Concomitant]
     Dosage: AS USED: 80/12.5 MG
     Route: 048
  8. ESCITALOPRAM [Concomitant]
     Dosage: TOTAL DAILY DOSE: 20 MG
     Route: 048

REACTIONS (7)
  - CHOKING SENSATION [None]
  - DECREASED APPETITE [None]
  - DIARRHOEA [None]
  - HYPERTHYROIDISM [None]
  - MALAISE [None]
  - TREMOR [None]
  - WEIGHT DECREASED [None]
